FAERS Safety Report 10537276 (Version 1)
Quarter: 2014Q4

REPORT INFORMATION
  Report Type: Report from Study
  Country: US (occurrence: US)
  Receive Date: 20141023
  Receipt Date: 20141023
  Transmission Date: 20150529
  Serious: No
  Sender: FDA-Public Use
  Company Number: US-LEO PHARMA-229344

PATIENT
  Age: 47 Year
  Sex: Male

DRUGS (1)
  1. PICATO [Suspect]
     Active Substance: INGENOL MEBUTATE
     Indication: PRODUCT USED FOR UNKNOWN INDICATION
     Route: 061
     Dates: start: 20140816

REACTIONS (3)
  - Incorrect drug administration duration [Unknown]
  - Application site exfoliation [Unknown]
  - Application site vesicles [Unknown]

NARRATIVE: CASE EVENT DATE: 20140818
